FAERS Safety Report 9919320 (Version 2)
Quarter: 2014Q2

REPORT INFORMATION
  Report Type: Spontaneous
  Country: US (occurrence: US)
  Receive Date: 20140224
  Receipt Date: 20140610
  Transmission Date: 20141212
  Serious: No
  Sender: FDA-Public Use
  Company Number: US-009507513-1402USA007272

PATIENT
  Age: 75 Year
  Sex: Male
  Weight: 104.31 kg

DRUGS (1)
  1. CLARITIN REDITABS 12HR [Suspect]
     Indication: SEASONAL ALLERGY
     Dosage: UNK, Q12H
     Route: 048
     Dates: start: 20140115, end: 20140120

REACTIONS (1)
  - Drug effect decreased [Unknown]
